FAERS Safety Report 5226368-4 (Version None)
Quarter: 2007Q1

REPORT INFORMATION
  Report Type: 
  Country: None (occurrence: None)
  Receive Date: 20061201
  Receipt Date: 20061024
  Transmission Date: 20070707
  Serious: No
  Sender: FDA-Public Use
  Company Number: US200610004432

PATIENT
  Age: 56 Year
  Sex: Female

DRUGS (6)
  1. CYMBALTA [Suspect]
     Indication: DEPRESSION
     Dosage: 20 MG, 2/D
     Dates: start: 20060101
  2. PREVACID [Concomitant]
  3. ALBUTEROL [Concomitant]
  4. FLONASE [Concomitant]
  5. AMBIEN [Concomitant]
  6. LORAZEPAM [Concomitant]

REACTIONS (5)
  - APATHY [None]
  - DEPRESSION [None]
  - HYPERSOMNIA [None]
  - SLEEP WALKING [None]
  - SOMNOLENCE [None]
